FAERS Safety Report 18784471 (Version 3)
Quarter: 2021Q1

REPORT INFORMATION
  Report Type: Spontaneous
  Country: US (occurrence: US)
  Receive Date: 20210126
  Receipt Date: 20210215
  Transmission Date: 20210419
  Serious: No
  Sender: FDA-Public Use
  Company Number: US-009507513-2101USA009457

PATIENT
  Age: 84 Year
  Sex: Female

DRUGS (2)
  1. DULERA [Suspect]
     Active Substance: FORMOTEROL FUMARATE DIHYDRATE\MOMETASONE FUROATE
     Dosage: UNK
     Dates: start: 2021
  2. DULERA [Suspect]
     Active Substance: FORMOTEROL FUMARATE DIHYDRATE\MOMETASONE FUROATE
     Indication: OBSTRUCTIVE AIRWAYS DISORDER
     Dosage: DOSE: 200 UNITS NOT REPORTED
     Dates: start: 20201231

REACTIONS (8)
  - Drug ineffective [Unknown]
  - Wrong technique in device usage process [Unknown]
  - Rhinorrhoea [Unknown]
  - Device malfunction [Unknown]
  - Arthritis [Unknown]
  - Product dose omission issue [Unknown]
  - Product use in unapproved indication [Unknown]
  - Poor quality device used [Unknown]

NARRATIVE: CASE EVENT DATE: 20201231
